FAERS Safety Report 5268394-5 (Version None)
Quarter: 2007Q1

REPORT INFORMATION
  Report Type: 
  Country: None (occurrence: None)
  Receive Date: 20070313
  Receipt Date: 20070227
  Transmission Date: 20070707
  Serious: Yes (Other)
  Sender: FDA-Public Use
  Company Number: 26428

PATIENT
  Age: 68 Year
  Sex: Female
  Weight: 45.3597 kg

DRUGS (1)
  1. NIASPAN [Suspect]
     Dosage: 2000 MG QD PO
     Route: 048
     Dates: start: 20070227, end: 20070227

REACTIONS (7)
  - ACCIDENTAL EXPOSURE [None]
  - ERYTHEMA [None]
  - FEELING HOT [None]
  - FLUSHING [None]
  - MEDICATION ERROR [None]
  - VOMITING [None]
  - WRONG DRUG ADMINISTERED [None]
